FAERS Safety Report 5760331-X (Version None)
Quarter: 2008Q2

REPORT INFORMATION
  Report Type: 
  Country: None (occurrence: None)
  Receive Date: 20080605
  Receipt Date: 20080527
  Transmission Date: 20081010
  Serious: Yes (Death, Hospitalization)
  Sender: FDA-Public Use
  Company Number: US-PFIZER INC-2006054390

PATIENT
  Sex: Female
  Weight: 68 kg

DRUGS (2)
  1. CELEBREX [Suspect]
     Dates: start: 20010103, end: 20050128
  2. BEXTRA [Suspect]
     Dates: start: 20030829, end: 20031207

REACTIONS (1)
  - PULMONARY EMBOLISM [None]
